FAERS Safety Report 7706764-3 (Version None)
Quarter: 2011Q3

REPORT INFORMATION
  Report Type: 
  Country: None (occurrence: None)
  Receive Date: 20110818
  Receipt Date: 20110812
  Transmission Date: 20111222
  Serious: Yes (Death, Hospitalization)
  Sender: FDA-Public Use
  Company Number: TRP_07890_2011

PATIENT
  Age: 59 Year
  Sex: Female

DRUGS (2)
  1. INTERFERON ALFA [Suspect]
     Indication: HEPATITIS C
     Dosage: (80 UG 1X/WEEK SUBCUTANEOUS)
     Route: 058
     Dates: start: 20090201
  2. RIBAVIRIN [Suspect]
     Indication: HEPATITIS C
     Dosage: (600 MG BID ORAL)
     Route: 048
     Dates: start: 20090201

REACTIONS (18)
  - PALLOR [None]
  - ASPARTATE AMINOTRANSFERASE INCREASED [None]
  - PURPURA [None]
  - RENAL ABSCESS [None]
  - ADRENAL GLAND ABSCESS [None]
  - DISSEMINATED INTRAVASCULAR COAGULATION [None]
  - SOMNOLENCE [None]
  - HYPOALBUMINAEMIA [None]
  - COMPUTERISED TOMOGRAM ABNORMAL [None]
  - DEPRESSED LEVEL OF CONSCIOUSNESS [None]
  - PLEURAL EFFUSION [None]
  - STAPHYLOCOCCAL SEPSIS [None]
  - SEPTIC SHOCK [None]
  - MEDIASTINAL ABSCESS [None]
  - THROMBOCYTOPENIA [None]
  - SKIN TURGOR DECREASED [None]
  - AZOTAEMIA [None]
  - MOUTH HAEMORRHAGE [None]
